FAERS Safety Report 6997617-7 (Version None)
Quarter: 2010Q3

REPORT INFORMATION
  Report Type: 
  Country: None (occurrence: None)
  Receive Date: 20100918
  Receipt Date: 20091105
  Transmission Date: 20110219
  Serious: No
  Sender: FDA-Public Use
  Company Number: US-WYE-H12079509

PATIENT
  Sex: Female

DRUGS (4)
  1. PRISTIQ [Suspect]
     Indication: ANXIETY
     Route: 048
     Dates: start: 20090801, end: 20090101
  2. PRISTIQ [Suspect]
     Route: 048
     Dates: start: 20090101
  3. YAZ [Concomitant]
  4. VYVANSE [Concomitant]

REACTIONS (5)
  - ALOPECIA [None]
  - DECREASED APPETITE [None]
  - HYPERSOMNIA [None]
  - SOMNOLENCE [None]
  - WEIGHT DECREASED [None]
